FAERS Safety Report 7368819-5 (Version None)
Quarter: 2011Q1

REPORT INFORMATION
  Report Type: 
  Country: None (occurrence: None)
  Receive Date: 20110323
  Receipt Date: 20100707
  Transmission Date: 20110831
  Serious: Yes (Hospitalization, Other)
  Sender: FDA-Public Use
  Company Number: US-BAYER-200942641NA

PATIENT
  Sex: Female
  Weight: 71 kg

DRUGS (7)
  1. MEDROXYPROGESTERONE [Concomitant]
     Route: 065
  2. YASMIN [Suspect]
     Indication: CONTRACEPTION
     Route: 048
     Dates: start: 20060916, end: 20061229
  3. HYDROCORTISONE [Concomitant]
     Route: 065
  4. XOPENEX [Concomitant]
     Route: 065
  5. PULMICORT [Concomitant]
     Route: 055
  6. SPIRIVA [Concomitant]
     Route: 065
  7. SINGULAIR [Concomitant]
     Route: 065

REACTIONS (3)
  - INJURY [None]
  - PAIN IN EXTREMITY [None]
  - THROMBOPHLEBITIS SUPERFICIAL [None]
